FAERS Safety Report 9376998 (Version 1)
Quarter: 2013Q2

REPORT INFORMATION
  Report Type: Spontaneous
  Country: US (occurrence: None)
  Receive Date: 20130628
  Receipt Date: 20130628
  Transmission Date: 20140414
  Serious: Yes (Other)
  Sender: FDA-Public Use
  Company Number: None

PATIENT
  Age: 70 Year
  Sex: Female
  Weight: 66.68 kg

DRUGS (13)
  1. GABAPENTIN [Suspect]
     Indication: RESTLESS LEGS SYNDROME
     Route: 048
     Dates: start: 20120830, end: 20130211
  2. ATORVASTATIN-10MG [Concomitant]
  3. BURPIONE-10MG [Concomitant]
  4. MBICORT-80/4.5 [Concomitant]
  5. FLUTICASONE PROPIONATE-50MCG [Concomitant]
  6. PRO AIR HFA-90MCG [Concomitant]
  7. ESTRADIOL TAB-1.0MG [Concomitant]
  8. MULTI VITAMIN [Concomitant]
  9. CALTRATE 600 + D [Concomitant]
  10. VITAMIN B-12 [Concomitant]
  11. GENTLESORB IRON-18MG [Concomitant]
  12. VITAMIN C-500MG [Concomitant]
  13. VITAMIN B-6-200MG [Concomitant]

REACTIONS (2)
  - Activities of daily living impaired [None]
  - Social avoidant behaviour [None]
